FAERS Safety Report 9226722 (Version 1)
Quarter: 2013Q2

REPORT INFORMATION
  Report Type: Spontaneous
  Country: US (occurrence: None)
  Receive Date: 20130410
  Receipt Date: 20130410
  Transmission Date: 20140414
  Serious: Yes (Hospitalization)
  Sender: FDA-Public Use
  Company Number: None

PATIENT
  Age: 67 Year
  Sex: Female

DRUGS (1)
  1. SUTENT [Suspect]
     Indication: CHEMOTHERAPY
     Dosage: 50MG DAILY PO
     Route: 048
     Dates: start: 20130225, end: 20130314

REACTIONS (7)
  - Pain [None]
  - Gait disturbance [None]
  - Dehydration [None]
  - Intestinal obstruction [None]
  - Weight decreased [None]
  - Hypophagia [None]
  - Decreased appetite [None]
